FAERS Safety Report 11704043 (Version 1)
Quarter: 2015Q4

REPORT INFORMATION
  Report Type: Spontaneous
  Country: US (occurrence: US)
  Receive Date: 20151106
  Receipt Date: 20151106
  Transmission Date: 20160304
  Serious: Yes (Other)
  Sender: FDA-Public Use
  Company Number: US-SUN PHARMACEUTICAL INDUSTRIES LTD-2015US-105665

PATIENT

DRUGS (2)
  1. BEVACIZUMAB [Suspect]
     Active Substance: BEVACIZUMAB
     Indication: PRODUCT USED FOR UNKNOWN INDICATION
     Dosage: UNK
     Route: 065
  2. TEMOZOLOMIDE. [Suspect]
     Active Substance: TEMOZOLOMIDE
     Indication: PRODUCT USED FOR UNKNOWN INDICATION
     Dosage: UNK
     Route: 065

REACTIONS (12)
  - Oesophagitis [Unknown]
  - Venous thrombosis [Unknown]
  - Neutropenia [Unknown]
  - Vomiting [Unknown]
  - Intestinal perforation [Unknown]
  - Haemorrhage [Unknown]
  - Fatigue [Unknown]
  - Impaired healing [Unknown]
  - Transaminases increased [Unknown]
  - Dehydration [Unknown]
  - Thrombocytopenia [Unknown]
  - Wound infection [Unknown]
